FAERS Safety Report 11009419 (Version 1)
Quarter: 2015Q2

REPORT INFORMATION
  Report Type: Spontaneous
  Country: IT (occurrence: IT)
  Receive Date: 20150410
  Receipt Date: 20150410
  Transmission Date: 20150821
  Serious: Yes (Hospitalization)
  Sender: FDA-Public Use
  Company Number: IT-BAYER-2015-090438

PATIENT
  Age: 52 Year
  Sex: Male

DRUGS (3)
  1. CIPROXIN 500 MG FILM-COATED TABLETS [Suspect]
     Active Substance: CIPROFLOXACIN
     Dosage: 1000 MG, ONCE
     Route: 048
     Dates: start: 20141022, end: 20141022
  2. ALCOHOL. [Concomitant]
     Active Substance: ALCOHOL
  3. EN [Suspect]
     Active Substance: DELORAZEPAM
     Dosage: 100 GTT, ONCE
     Route: 048
     Dates: start: 20141022, end: 20141022

REACTIONS (3)
  - Drug abuse [Recovering/Resolving]
  - Sopor [Recovering/Resolving]
  - Intentional self-injury [Recovering/Resolving]

NARRATIVE: CASE EVENT DATE: 20141022
